FAERS Safety Report 12787385 (Version 1)
Quarter: 2016Q3

REPORT INFORMATION
  Report Type: Report from Study
  Country: US (occurrence: US)
  Receive Date: 20160928
  Receipt Date: 20160928
  Transmission Date: 20161109
  Serious: Yes (Disabling)
  Sender: FDA-Public Use
  Company Number: US-ROCHE-1835099

PATIENT

DRUGS (11)
  1. LISINOPRIL. [Concomitant]
     Active Substance: LISINOPRIL
     Indication: HYPERTENSION
     Dosage: 1 YEAR TO 5 YEARS AT THE?TIME OF ENROLLMENT
     Route: 048
  2. RANIBIZUMAB [Suspect]
     Active Substance: RANIBIZUMAB
     Indication: DIABETIC RETINAL OEDEMA
     Dosage: 31/MAR/2016, 28/APR/2016, 26/MAY/2016, 16/JUN/2016, 14/JUL/2016, 11/AUG/2016, 22/SEP/2016?OS (RIGHT
     Route: 050
     Dates: start: 20160303
  3. DEXAMETHASONE. [Suspect]
     Active Substance: DEXAMETHASONE
     Dosage: OS
     Route: 050
     Dates: start: 20160811
  4. INSULIN GLARGINE [Concomitant]
     Active Substance: INSULIN GLARGINE
     Indication: DIABETES MELLITUS
     Dosage: 100 UNIT, 1 YEAR TO 5 YEARS AT THE?TIME OF ENROLLMENT
     Route: 058
  5. ASPIRIN. [Concomitant]
     Active Substance: ASPIRIN
     Indication: PROPHYLAXIS
     Dosage: 1 YEAR TO 5 YEARS AT THE?TIME OF ENROLLMENT
     Route: 048
  6. LEVOTHYROXINE SODIUM. [Concomitant]
     Active Substance: LEVOTHYROXINE SODIUM
     Indication: HYPOTHYROIDISM
     Dosage: 1 YEAR TO 5 YEARS AT THE?TIME OF ENROLLMENT
     Route: 048
  7. DEXAMETHASONE. [Suspect]
     Active Substance: DEXAMETHASONE
     Indication: DIABETIC RETINAL OEDEMA
     Dosage: OS (RIGHT EYE)
     Route: 050
     Dates: start: 20160526
  8. ATORVASTATIN CALCIUM. [Concomitant]
     Active Substance: ATORVASTATIN CALCIUM
     Indication: HYPERCHOLESTEROLAEMIA
     Dosage: 1 YEAR TO 5 YEARS AT THE?TIME OF ENROLLMENT
     Route: 048
  9. FUROSEMIDE. [Concomitant]
     Active Substance: FUROSEMIDE
     Indication: HYPERTENSION
     Dosage: 1 YEAR TO 5 YEARS AT THE?TIME OF ENROLLMENT
     Route: 048
  10. METFORMIN HYDROCHLORIDE. [Concomitant]
     Active Substance: METFORMIN HYDROCHLORIDE
     Indication: DIABETES MELLITUS
     Route: 048
  11. MIRALAX [Concomitant]
     Active Substance: POLYETHYLENE GLYCOL 3350
     Indication: CONSTIPATION
     Dosage: 1 YEAR TO 5 YEARS AT THE?TIME OF ENROLLMENT
     Route: 048

REACTIONS (1)
  - Cataract subcapsular [Unknown]

NARRATIVE: CASE EVENT DATE: 20160922
